FAERS Safety Report 6898320-4 (Version None)
Quarter: 2010Q3

REPORT INFORMATION
  Report Type: 
  Country: None (occurrence: None)
  Receive Date: 20100802
  Receipt Date: 20071004
  Transmission Date: 20110219
  Serious: No
  Sender: FDA-Public Use
  Company Number: US-PFIZER INC-2007073627

PATIENT
  Age: 94 Year
  Sex: Male

DRUGS (3)
  1. LYRICA [Suspect]
     Indication: POST HERPETIC NEURALGIA
     Dates: start: 20060101
  2. LYRICA [Suspect]
     Indication: HERPES ZOSTER
  3. TYLENOL [Concomitant]

REACTIONS (2)
  - CARTILAGE INJURY [None]
  - DRUG INEFFECTIVE [None]
